FAERS Safety Report 14340027 (Version 4)
Quarter: 2018Q2

REPORT INFORMATION
  Report Type: Report from Study
  Country: DE (occurrence: DE)
  Receive Date: 20171231
  Receipt Date: 20180504
  Transmission Date: 20180711
  Serious: Yes (Life-Threatening, Hospitalization, Other)
  Sender: FDA-Public Use
  Company Number: DE-TEVA-2017-DE-838162

PATIENT
  Sex: Male
  Weight: 75 kg

DRUGS (5)
  1. HEPARIN [Suspect]
     Active Substance: HEPARIN SODIUM
     Dosage: 20 MILLIGRAM DAILY; 20 MG, QD
     Dates: start: 20141025, end: 20141025
  2. CLEXANE [Suspect]
     Active Substance: ENOXAPARIN SODIUM
     Dosage: 40 MILLIGRAM DAILY; 40 MG, QD
  3. ENOXAPARIN [Suspect]
     Active Substance: ENOXAPARIN
     Dosage: 40 MILLIGRAM DAILY; 40 MG, QD
  4. XARELTO [Suspect]
     Active Substance: RIVAROXABAN
     Indication: ATRIAL FIBRILLATION
     Dosage: 15 MILLIGRAM DAILY; 15 MG, OM
     Dates: end: 20141024
  5. HEPARIN [Suspect]
     Active Substance: HEPARIN SODIUM
     Dosage: 40 MILLIGRAM DAILY; 40 MG, QD
     Dates: start: 20141031

REACTIONS (9)
  - Post procedural haemorrhage [Recovered/Resolved with Sequelae]
  - Subdural haematoma [Recovered/Resolved]
  - Seizure [Recovered/Resolved]
  - Gait disturbance [Unknown]
  - Spinal cord haemorrhage [Recovered/Resolved with Sequelae]
  - Adverse event [Unknown]
  - Spontaneous haemorrhage [Recovered/Resolved]
  - Haemorrhage intracranial [Recovered/Resolved with Sequelae]
  - Lung infection [Unknown]

NARRATIVE: CASE EVENT DATE: 20141019
